FAERS Safety Report 23964362 (Version 1)
Quarter: 2024Q2

REPORT INFORMATION
  Report Type: Spontaneous
  Country: US (occurrence: US)
  Receive Date: 20240611
  Receipt Date: 20240611
  Transmission Date: 20240716
  Serious: No
  Sender: FDA-Public Use
  Company Number: US-RIGEL Pharmaceuticals, INC-2023FOS000735

PATIENT
  Age: 74 Year
  Sex: Female
  Weight: 63.039 kg

DRUGS (15)
  1. TAVALISSE [Suspect]
     Active Substance: FOSTAMATINIB
     Indication: Immune thrombocytopenia
     Dosage: 150 MG, BID
     Route: 048
     Dates: start: 20230620, end: 20230719
  2. TAVALISSE [Suspect]
     Active Substance: FOSTAMATINIB
     Dosage: 100 MG, BID
     Route: 048
     Dates: start: 20230719
  3. TAVALISSE [Suspect]
     Active Substance: FOSTAMATINIB
     Dosage: 100 MG, BID
     Route: 048
     Dates: start: 20221206
  4. AMLODIPINE [Concomitant]
     Active Substance: AMLODIPINE BESYLATE
     Indication: Product used for unknown indication
     Dosage: 5 MG, QD
  5. ATORVASTATIN [Concomitant]
     Active Substance: ATORVASTATIN
     Indication: Product used for unknown indication
     Dosage: 20 MG, QD
  6. DICLOFENAC [Concomitant]
     Active Substance: DICLOFENAC
     Indication: Product used for unknown indication
     Dosage: 1 %, Q6H
     Route: 061
  7. HYDROCHLOROTHIAZIDE [Concomitant]
     Active Substance: HYDROCHLOROTHIAZIDE
     Indication: Product used for unknown indication
     Dosage: 12.5 MG, QD
  8. LASIX [Concomitant]
     Active Substance: FUROSEMIDE
     Indication: Product used for unknown indication
     Dosage: 20 MG, PRN
  9. MAGNESIUM OXIDE [Concomitant]
     Active Substance: MAGNESIUM OXIDE
     Indication: Product used for unknown indication
     Dosage: 400 MG, BID
  10. METAXALONE [Concomitant]
     Active Substance: METAXALONE
     Indication: Product used for unknown indication
     Dosage: 400 MG, TID
  11. METFORMIN HYDROCHLORIDE [Concomitant]
     Active Substance: METFORMIN HYDROCHLORIDE
     Indication: Product used for unknown indication
     Dosage: 1000 MG, BID
  12. NOVOLIN U [INSULIN HUMAN ZINC SUSPENSION] [Concomitant]
     Indication: Product used for unknown indication
     Dosage: 100 UT, PRN
  13. OMEPRAZOLE [Concomitant]
     Active Substance: DONEPEZIL HYDROCHLORIDE\OMEPRAZOLE\OMEPRAZOLE MAGNESIUM
     Indication: Product used for unknown indication
     Dosage: 20 MG, BID
  14. PIOGLITAZONE [Concomitant]
     Active Substance: PIOGLITAZONE
     Indication: Product used for unknown indication
     Dosage: 30 MG, QD
  15. BUPROPION [Concomitant]
     Active Substance: BUPROPION
     Indication: Product used for unknown indication
     Dosage: 100 MG, QD

REACTIONS (6)
  - Decubitus ulcer [Unknown]
  - Vaginal haemorrhage [Unknown]
  - Peripheral swelling [Unknown]
  - Skin discolouration [Unknown]
  - Diarrhoea [Not Recovered/Not Resolved]
  - Nausea [Unknown]

NARRATIVE: CASE EVENT DATE: 20221201
